FAERS Safety Report 13591555 (Version 1)
Quarter: 2017Q2

REPORT INFORMATION
  Report Type: Spontaneous
  Country: US (occurrence: US)
  Receive Date: 20170530
  Receipt Date: 20170530
  Transmission Date: 20170830
  Serious: No
  Sender: FDA-Public Use
  Company Number: None

PATIENT
  Age: 40 Year
  Sex: Female

DRUGS (1)
  1. MINIVELLE [Suspect]
     Active Substance: ESTRADIOL
     Indication: INFERTILITY
     Dosage: 0.1MG/24H EVERY 3 DAYS TOPICALLY
     Route: 061
     Dates: start: 20170411, end: 20170530

REACTIONS (3)
  - Application site erythema [None]
  - Application site pruritus [None]
  - Dermatitis contact [None]

NARRATIVE: CASE EVENT DATE: 20170530
